FAERS Safety Report 9980740 (Version 1)
Quarter: 2014Q1

REPORT INFORMATION
  Report Type: Spontaneous
  Country: US (occurrence: US)
  Receive Date: 20140307
  Receipt Date: 20140307
  Transmission Date: 20141002
  Serious: No
  Sender: FDA-Public Use
  Company Number: US-009507513-1402USA011008

PATIENT
  Sex: Female

DRUGS (8)
  1. ZETIA [Suspect]
     Dosage: ONE 10 MG TABLET ONCE DAILY
     Route: 048
  2. AMLODIPINE [Concomitant]
  3. QUINAPRIL HYDROCHLORIDE [Concomitant]
  4. HYDROCHLOROTHIAZIDE [Concomitant]
     Route: 048
  5. ATORVASTATIN [Concomitant]
  6. ROPINIROLE [Concomitant]
  7. ZOLPIDEM TARTRATE [Concomitant]
     Route: 048
  8. SYNTHROID [Concomitant]

REACTIONS (2)
  - Food allergy [Recovering/Resolving]
  - Coeliac disease [Recovering/Resolving]
